FAERS Safety Report 11155044 (Version 1)
Quarter: 2015Q2

REPORT INFORMATION
  Report Type: Spontaneous
  Country: JP (occurrence: JP)
  Receive Date: 20150602
  Receipt Date: 20150602
  Transmission Date: 20150821
  Serious: No
  Sender: FDA-Public Use
  Company Number: JP-JNJFOC-20150516222

PATIENT
  Age: 86 Year
  Sex: Female
  Weight: 40 kg

DRUGS (1)
  1. DUROTEP MT [Suspect]
     Active Substance: FENTANYL
     Indication: CANCER PAIN
     Dosage: 25 UG/HR + 6.25 UG/HR
     Route: 062

REACTIONS (1)
  - Wrong technique in drug usage process [Unknown]
